FAERS Safety Report 17109483 (Version 1)
Quarter: 2019Q4

REPORT INFORMATION
  Report Type: Report from Study
  Country: US (occurrence: US)
  Receive Date: 20191204
  Receipt Date: 20191204
  Transmission Date: 20200122
  Serious: No
  Sender: FDA-Public Use
  Company Number: NVSC2019US057979

PATIENT
  Age: 61 Year
  Sex: Male
  Weight: 64.54 kg

DRUGS (5)
  1. TIGECYCLINE. [Suspect]
     Active Substance: TIGECYCLINE
     Dosage: 50 MG, Q12H
     Route: 042
     Dates: start: 20190723, end: 20190730
  2. TIGECYCLINE. [Suspect]
     Active Substance: TIGECYCLINE
     Indication: MYCOBACTERIUM ABSCESSUS INFECTION
     Dosage: 50 MG, Q12H
     Route: 042
     Dates: start: 20190716, end: 20190719
  3. IMIPENEM [Suspect]
     Active Substance: IMIPENEM
     Indication: MYCOBACTERIUM ABSCESSUS INFECTION
     Dosage: 1 G, Q12H
     Route: 042
     Dates: start: 20190806
  4. LAMPRENE [Suspect]
     Active Substance: CLOFAZIMINE
     Indication: MYCOBACTERIUM ABSCESSUS INFECTION
     Dosage: 100 MG, Q12H
     Route: 048
     Dates: start: 20190716, end: 20190729
  5. LAMPRENE [Suspect]
     Active Substance: CLOFAZIMINE
     Dosage: 100 MG, QD
     Route: 048
     Dates: start: 20190813

REACTIONS (4)
  - Aspartate aminotransferase increased [Recovered/Resolved]
  - Alanine aminotransferase increased [Recovered/Resolved]
  - Nausea [Recovered/Resolved]
  - Vomiting [Recovered/Resolved]

NARRATIVE: CASE EVENT DATE: 20190717
